FAERS Safety Report 18537965 (Version 2)
Quarter: 2020Q4

REPORT INFORMATION
  Report Type: Report from Study
  Country: US (occurrence: US)
  Receive Date: 20201123
  Receipt Date: 20201202
  Transmission Date: 20210114
  Serious: Yes (Hospitalization)
  Sender: FDA-Public Use
  Company Number: US-EISAI MEDICAL RESEARCH-EC-2020-083878

PATIENT
  Age: 34 Year
  Sex: Male

DRUGS (4)
  1. LENVIMA [Suspect]
     Active Substance: LENVATINIB
     Indication: HEPATOCELLULAR CARCINOMA
     Route: 048
     Dates: start: 20201024, end: 20201115
  2. WARFARIN [Concomitant]
     Active Substance: WARFARIN
     Indication: JANUS KINASE 2 MUTATION
  3. LENVIMA [Suspect]
     Active Substance: LENVATINIB
     Route: 048
     Dates: start: 202011
  4. ASPIRIN. [Concomitant]
     Active Substance: ASPIRIN
     Indication: JANUS KINASE 2 MUTATION

REACTIONS (5)
  - Stress [Recovering/Resolving]
  - Vision blurred [Unknown]
  - Blood pressure increased [Unknown]
  - Platelet count increased [Recovered/Resolved]
  - Anxiety [Recovering/Resolving]

NARRATIVE: CASE EVENT DATE: 20201113
